FAERS Safety Report 7238312-9 (Version None)
Quarter: 2011Q1

REPORT INFORMATION
  Report Type: 
  Country: None (occurrence: None)
  Receive Date: 20110121
  Receipt Date: 20110114
  Transmission Date: 20110831
  Serious: Yes (Disabling)
  Sender: FDA-Public Use
  Company Number: GB-BAXTER-2011BH001350

PATIENT
  Sex: Male

DRUGS (2)
  1. MESNA [Suspect]
     Indication: PRODUCT USED FOR UNKNOWN INDICATION
     Route: 065
     Dates: start: 20101209, end: 20101209
  2. HOLOXAN BAXTER [Suspect]
     Indication: PRODUCT USED FOR UNKNOWN INDICATION
     Route: 065
     Dates: start: 20101209, end: 20101209

REACTIONS (4)
  - DRY SKIN [None]
  - PALMAR ERYTHEMA [None]
  - SKIN EXFOLIATION [None]
  - RASH GENERALISED [None]
